FAERS Safety Report 7259829-7 (Version None)
Quarter: 2011Q1

REPORT INFORMATION
  Report Type: 
  Country: None (occurrence: None)
  Receive Date: 20110130
  Receipt Date: 20100916
  Transmission Date: 20110831
  Serious: No
  Sender: FDA-Public Use
  Company Number: US-ABBOTT-10P-163-0671189-00

PATIENT
  Age: 39 Year
  Sex: Female

DRUGS (10)
  1. ZANAFLEX [Concomitant]
     Indication: MUSCLE SPASMS
     Dosage: 2 PILLS AT BED TIME
  2. IRON [Concomitant]
     Indication: SUPPLEMENTATION THERAPY
  3. GAS-X [Concomitant]
     Indication: PRODUCT USED FOR UNKNOWN INDICATION
  4. ANTIDEPRESSANTS [Concomitant]
     Indication: PRODUCT USED FOR UNKNOWN INDICATION
  5. PERCOCET [Concomitant]
     Indication: BREAKTHROUGH PAIN
     Dosage: 10/325 MG 1 PILL EVERY 4 HOURS
  6. NEXIUM [Concomitant]
     Indication: GASTROOESOPHAGEAL REFLUX DISEASE
  7. HUMIRA [Suspect]
     Indication: CROHN'S DISEASE
     Dates: start: 20100801, end: 20100816
  8. MORLIX [Concomitant]
     Indication: CONSTIPATION
  9. METHADONE [Concomitant]
     Indication: PAIN
     Dosage: 3 TABLETS EVERY 6 HOURS
  10. MULTIVITAMIN PRENATAL PLUS VITAMIN [Concomitant]
     Indication: PRODUCT USED FOR UNKNOWN INDICATION

REACTIONS (4)
  - OEDEMA PERIPHERAL [None]
  - GLOSSODYNIA [None]
  - ORAL PAIN [None]
  - ORAL DISCOMFORT [None]
